FAERS Safety Report 4783438-2 (Version None)
Quarter: 2005Q3

REPORT INFORMATION
  Report Type: 
  Country: None (occurrence: None)
  Receive Date: 20050929
  Receipt Date: 20050921
  Transmission Date: 20060218
  Serious: Yes (Hospitalization)
  Sender: FDA-Public Use
  Company Number: PHHO2005JP15006

PATIENT
  Age: 72 Year
  Sex: Male
  Weight: 62 kg

DRUGS (5)
  1. LOCHOL [Suspect]
     Indication: HYPERCHOLESTEROLAEMIA
     Dosage: 20 MG, QD
     Route: 048
     Dates: start: 20020123
  2. SERMION [Concomitant]
     Indication: CEREBRAL INFARCTION
  3. ASPIRIN [Concomitant]
     Indication: CEREBRAL INFARCTION
  4. PANALDINE [Concomitant]
     Indication: CEREBRAL INFARCTION
  5. ULCERLMIN [Concomitant]
     Indication: GASTRITIS

REACTIONS (3)
  - ATRIAL FIBRILLATION [None]
  - INTRACARDIAC THROMBUS [None]
  - THROMBOSIS [None]
